FAERS Safety Report 18243060 (Version 1)
Quarter: 2020Q3

REPORT INFORMATION
  Report Type: Spontaneous
  Country: US (occurrence: US)
  Receive Date: 20200908
  Receipt Date: 20200908
  Transmission Date: 20201103
  Serious: Yes (Death)
  Sender: FDA-Public Use
  Company Number: None

PATIENT
  Age: 86 Year
  Sex: Male
  Weight: 80.5 kg

DRUGS (12)
  1. ALLOPUN^NOL 100MG DAILY [Concomitant]
     Dates: start: 20200901, end: 20200906
  2. FENTANYL 50MCG/HOUR [Concomitant]
     Dates: start: 20200902, end: 20200906
  3. CEFEPIME 29M IV Q12HR [Concomitant]
     Dates: start: 20200901, end: 20200906
  4. FAMOTIDINE 20MG IV BID [Concomitant]
     Dates: start: 20200904, end: 20200906
  5. HEPARIN 5000 UNITS SQ Q8HR [Concomitant]
     Dates: start: 20200901, end: 20200906
  6. REMDESIVIR INJECTABLE VIAL [Suspect]
     Active Substance: REMDESIVIR
     Indication: COVID-19
     Route: 042
     Dates: start: 20200902, end: 20200903
  7. DEXAMETHASONE 6MG IV DAILY [Concomitant]
     Dates: start: 20200902, end: 20200906
  8. VANCOMYCIN 1.25GM IV Q24HR [Concomitant]
     Dates: start: 20200902, end: 20200904
  9. NOREPINEPHRINE 1?5MCG/MINUTE [Concomitant]
     Dates: start: 20200902, end: 20200904
  10. LEVOTHYROXINE 75MCG NG DAILY [Concomitant]
     Dates: start: 20200901, end: 20200906
  11. ESCITALOPRAM 10MG DAILY [Concomitant]
     Dates: start: 20200901, end: 20200906
  12. QUETIAPINE12.5MGQHS [Concomitant]
     Dates: start: 20200901, end: 20200905

REACTIONS (1)
  - Therapy interrupted [None]

NARRATIVE: CASE EVENT DATE: 20200906
